FAERS Safety Report 4370567-0 (Version None)
Quarter: 2004Q2

REPORT INFORMATION
  Report Type: 
  Country: None (occurrence: None)
  Receive Date: 20040603
  Receipt Date: 20040528
  Transmission Date: 20050107
  Serious: Yes (Hospitalization)
  Sender: FDA-Public Use
  Company Number: JP-MERCK-0406USA00046

PATIENT
  Age: 74 Year
  Sex: Female

DRUGS (2)
  1. HYDRODIURIL [Suspect]
     Indication: HYPERTENSION
     Route: 048
     Dates: start: 20040301
  2. VALSARTAN [Suspect]
     Indication: HYPERTENSION
     Route: 048
     Dates: start: 20031201

REACTIONS (1)
  - HEPATITIS ACUTE [None]
